FAERS Safety Report 7212946-X (Version None)
Quarter: 2011Q1

REPORT INFORMATION
  Report Type: 
  Country: None (occurrence: None)
  Receive Date: 20110106
  Receipt Date: 20110103
  Transmission Date: 20110831
  Serious: Yes (Hospitalization)
  Sender: FDA-Public Use
  Company Number: IT-ABBOTT-10P-083-0692451-00

PATIENT
  Age: 39 Year
  Sex: Female

DRUGS (2)
  1. ENANTONE 3.75 MG [Suspect]
     Indication: IN VITRO FERTILISATION
     Route: 030
     Dates: start: 20101022, end: 20101022
  2. ENANTONE 3.75 MG [Suspect]
     Indication: OVULATION INDUCTION

REACTIONS (1)
  - OVARIAN HYPERSTIMULATION SYNDROME [None]
